FAERS Safety Report 9063413 (Version 1)
Quarter: 2013Q1

REPORT INFORMATION
  Report Type: Spontaneous
  Country: US (occurrence: US)
  Receive Date: 20130213
  Receipt Date: 20130213
  Transmission Date: 20140127
  Serious: Yes (Hospitalization, Disabling, Other)
  Sender: FDA-Public Use
  Company Number: PHEH2013US003159

PATIENT
  Sex: Female
  Weight: 63 kg

DRUGS (2)
  1. MYFORTIC [Suspect]
     Indication: LIVER TRANSPLANT
     Dosage: 1080 MG, BID
     Route: 048
     Dates: start: 20091123, end: 20130204
  2. PROGRAF [Concomitant]
     Dosage: UNK UKN, UNK

REACTIONS (4)
  - Progressive multifocal leukoencephalopathy [Not Recovered/Not Resolved]
  - Terminal state [Unknown]
  - Brain mass [Unknown]
  - Hemiparesis [Unknown]
